FAERS Safety Report 6618693-7 (Version None)
Quarter: 2010Q1

REPORT INFORMATION
  Report Type: 
  Country: None (occurrence: None)
  Receive Date: 20100305
  Receipt Date: 20100305
  Transmission Date: 20100710
  Serious: Yes (Disabling)
  Sender: FDA-Public Use
  Company Number: None

PATIENT
  Sex: Male
  Weight: 78.7 kg

DRUGS (1)
  1. LEVAQUIN [Suspect]
     Indication: PNEUMONIA
     Dosage: 1 TABLET EVERY OTHER DAY GIVEN X 1 TAB. ONLY!
     Dates: start: 20091113

REACTIONS (6)
  - ARTHRALGIA [None]
  - BALANCE DISORDER [None]
  - FALL [None]
  - INFLAMMATION [None]
  - MYALGIA [None]
  - TENDONITIS [None]
